FAERS Safety Report 18737581 (Version 1)
Quarter: 2021Q1

REPORT INFORMATION
  Report Type: Spontaneous
  Country: US (occurrence: US)
  Receive Date: 20210113
  Receipt Date: 20210113
  Transmission Date: 20210419
  Serious: Yes (Death, Other)
  Sender: FDA-Public Use
  Company Number: US-EPIC PHARMA LLC-2020EPC00349

PATIENT
  Sex: Male

DRUGS (3)
  1. ALPRAZOLAM. [Suspect]
     Active Substance: ALPRAZOLAM
  2. OXYCODONE [Suspect]
     Active Substance: OXYCODONE
  3. OXYMORPHONE [Suspect]
     Active Substance: OXYMORPHONE

REACTIONS (2)
  - Overdose [Fatal]
  - Dependence [Unknown]
